FAERS Safety Report 8786380 (Version 2)
Quarter: 2012Q4

REPORT INFORMATION
  Report Type: 
  Country: US (occurrence: US)
  Receive Date: 20120914
  Receipt Date: 20121019
  Transmission Date: 20130627
  Serious: Yes (Other)
  Sender: FDA-Public Use
  Company Number: US-PFIZER INC-2012227277

PATIENT
  Age: 63 Year
  Sex: Male
  Weight: 74 kg

DRUGS (7)
  1. CADUET [Suspect]
     Indication: HYPERTENSION
     Dosage: 5 mg/ 10 mg, 1x/day
     Route: 048
     Dates: start: 2009
  2. CADUET [Suspect]
     Indication: BLOOD CHOLESTEROL INCREASED
     Dosage: UNK
     Route: 048
  3. ADVAIR [Concomitant]
     Indication: ASTHMA
     Dosage: UNK
  4. ADVAIR [Concomitant]
     Indication: CHRONIC OBSTRUCTIVE PULMONARY DISEASE
  5. PROAIR [Concomitant]
     Dosage: UNK
  6. OMNARIS [Concomitant]
     Dosage: UNK
  7. PATADAY [Concomitant]
     Dosage: UNK

REACTIONS (1)
  - Lung neoplasm malignant [Unknown]
